FAERS Safety Report 8790634 (Version 1)
Quarter: 2012Q4

REPORT INFORMATION
  Report Type: Spontaneous
  Country: US (occurrence: None)
  Receive Date: 20120907
  Receipt Date: 20120907
  Transmission Date: 20130627
  Serious: Yes (Other)
  Sender: FDA-Public Use
  Company Number: PI-07889

PATIENT
  Age: 4 Year
  Sex: Male

DRUGS (1)
  1. CHLORAPREP [Suspect]
     Route: 061
     Dates: start: 20120730

REACTIONS (1)
  - Chemical injury [None]
